FAERS Safety Report 5003852-X (Version None)
Quarter: 2006Q2

REPORT INFORMATION
  Report Type: 
  Country: None (occurrence: None)
  Receive Date: 20060515
  Receipt Date: 20060508
  Transmission Date: 20061013
  Serious: Yes (Death, Life-Threatening)
  Sender: FDA-Public Use
  Company Number: 060406-0000321

PATIENT
  Age: 14 Day
  Sex: Female
  Weight: 1.02 kg

DRUGS (15)
  1. INDOCIN [Suspect]
     Indication: PATENT DUCTUS ARTERIOSUS
     Dosage: SEE IMAGE
     Route: 042
     Dates: start: 19980301, end: 19980302
  2. INDOCIN [Suspect]
     Indication: PATENT DUCTUS ARTERIOSUS
     Dosage: SEE IMAGE
     Route: 042
     Dates: start: 19980306, end: 19980306
  3. PONTAL (MEFENAMIC ACID) [Suspect]
     Indication: PATENT DUCTUS ARTERIOSUS
     Dosage: IV
     Route: 042
     Dates: start: 19980228
  4. GENTACIN [Concomitant]
  5. FUROSEMIDE [Concomitant]
  6. BERACTANT [Concomitant]
  7. TAKESULIN [Concomitant]
  8. VENOGLOBULIN [Concomitant]
  9. AMIKACIN SULFATE [Concomitant]
  10. CALCIUM GLUCONATE [Concomitant]
  11. AMINOPHYLLIN [Concomitant]
  12. SODIUM BICARBONATE [Concomitant]
  13. VANCOMYCIN [Concomitant]
  14. RED BLOOD CELLS [Concomitant]
  15. PLATELETS [Concomitant]

REACTIONS (4)
  - INTESTINAL PERFORATION [None]
  - NECROTISING ENTEROCOLITIS NEONATAL [None]
  - NEONATAL DISORDER [None]
  - PERITONITIS [None]
